FAERS Safety Report 4865763-X (Version None)
Quarter: 2005Q4

REPORT INFORMATION
  Report Type: 
  Country: None (occurrence: None)
  Receive Date: 20051220
  Receipt Date: 20051207
  Transmission Date: 20060501
  Serious: Yes (Death)
  Sender: FDA-Public Use
  Company Number: 8013858

PATIENT
  Age: 80 Year
  Sex: Female

DRUGS (4)
  1. KEPPRA [Suspect]
     Indication: EPILEPSY
     Dosage: 1500 MG  /D PO
     Route: 048
     Dates: start: 20050919, end: 20051103
  2. TICLOPIDINE HCL [Suspect]
     Indication: CEREBRAL ISCHAEMIA
     Dosage: 500 MG 1/D PO
     Route: 048
     Dates: start: 20050905, end: 20051130
  3. GARDENALE [Concomitant]
  4. ACESISTEM [Concomitant]

REACTIONS (5)
  - EPILEPSY [None]
  - ESSENTIAL HYPERTENSION [None]
  - INFECTION [None]
  - LEUKOPENIA [None]
  - SEPSIS [None]
